FAERS Safety Report 15641732 (Version 2)
Quarter: 2019Q3

REPORT INFORMATION
  Report Type: Report from Study
  Country: US (occurrence: US)
  Receive Date: 20181121
  Receipt Date: 20190705
  Transmission Date: 20191004
  Serious: Yes (Hospitalization)
  Sender: FDA-Public Use
  Company Number: US-ACADIA PHARMACEUTICALS INC.-ACA-2018-010940

PATIENT
  Age: 74 Year
  Sex: Female

DRUGS (27)
  1. CARBIDOPA/LEVODOPA [Concomitant]
     Active Substance: CARBIDOPA\LEVODOPA
     Indication: PRODUCT USED FOR UNKNOWN INDICATION
     Dosage: 25-100 MG
     Route: 048
     Dates: start: 20161221
  2. ASPIRIN. [Concomitant]
     Active Substance: ASPIRIN
     Indication: PRODUCT USED FOR UNKNOWN INDICATION
     Dosage: 81 MG, UNK
     Route: 048
     Dates: start: 20161221
  3. PANTOPRAZOLE [Concomitant]
     Active Substance: PANTOPRAZOLE
     Indication: PRODUCT USED FOR UNKNOWN INDICATION
     Dosage: 40 MG, UNK
     Dates: start: 20180526
  4. PANTOPRAZOLE [Concomitant]
     Active Substance: PANTOPRAZOLE
     Dosage: 40 MG, UNK
     Dates: start: 20190528
  5. NUPLAZID [Suspect]
     Active Substance: PIMAVANSERIN TARTRATE
     Indication: PARKINSON^S DISEASE
     Dosage: 10 MG, QAM
     Route: 048
  6. VITAMIN D3 [Concomitant]
     Active Substance: CHOLECALCIFEROL
     Dosage: 2000 UNIT
     Route: 048
     Dates: start: 20161221
  7. RIVASTIGMINE. [Concomitant]
     Active Substance: RIVASTIGMINE
     Indication: PRODUCT USED FOR UNKNOWN INDICATION
     Dosage: 4.5 MG
     Route: 048
     Dates: start: 20161221
  8. METHENAMINE [Concomitant]
     Active Substance: METHENAMINE
     Indication: PRODUCT USED FOR UNKNOWN INDICATION
     Dosage: 1 GM, UNK
     Dates: start: 20190205
  9. MYRBETRIQ [Concomitant]
     Active Substance: MIRABEGRON
     Indication: PRODUCT USED FOR UNKNOWN INDICATION
     Dosage: 25 MG, UNK
     Route: 048
     Dates: start: 20170808
  10. SERTRALINE HCL [Concomitant]
     Active Substance: SERTRALINE HYDROCHLORIDE
     Indication: PRODUCT USED FOR UNKNOWN INDICATION
     Dosage: 25 MG, UNK
     Route: 048
     Dates: start: 20170609
  11. VITAMIN D3 [Concomitant]
     Active Substance: CHOLECALCIFEROL
     Indication: PRODUCT USED FOR UNKNOWN INDICATION
     Dosage: 4200-500 UNIT
     Dates: start: 20161221
  12. METHENAMINE [Concomitant]
     Active Substance: METHENAMINE
     Dosage: 1 GM
     Dates: start: 20190206
  13. LEVOTHYROXINE. [Concomitant]
     Active Substance: LEVOTHYROXINE
     Indication: PRODUCT USED FOR UNKNOWN INDICATION
     Dosage: 25 MCG
     Dates: start: 20190424
  14. METHENAMINE [Concomitant]
     Active Substance: METHENAMINE
     Dosage: 1 GM
     Dates: start: 20190622
  15. NUPLAZID [Suspect]
     Active Substance: PIMAVANSERIN TARTRATE
     Indication: PARKINSON^S DISEASE
     Dosage: 34 MG, QHS
     Route: 048
  16. MYRBETRIQ [Concomitant]
     Active Substance: MIRABEGRON
     Dosage: 25 MG, UNK
     Dates: start: 20170609
  17. MULTIVITAMIN WITH FLUORIDE NOS [Concomitant]
     Active Substance: SODIUM FLUORIDE\VITAMINS
     Indication: PRODUCT USED FOR UNKNOWN INDICATION
     Dosage: 1 MG, UNK
     Route: 048
     Dates: start: 20170609
  18. VOLTAREN [Concomitant]
     Active Substance: DICLOFENAC SODIUM
     Dosage: 1%
     Route: 062
     Dates: start: 20181221
  19. AZELASTINE. [Concomitant]
     Active Substance: AZELASTINE HYDROCHLORIDE
     Indication: PRODUCT USED FOR UNKNOWN INDICATION
     Dosage: 0.1%
     Dates: start: 20190604
  20. PROAIR HFA [Concomitant]
     Active Substance: ALBUTEROL SULFATE
     Indication: PRODUCT USED FOR UNKNOWN INDICATION
     Dosage: UNK
     Dates: start: 20190528
  21. NUPLAZID [Suspect]
     Active Substance: PIMAVANSERIN TARTRATE
     Indication: PARKINSON^S DISEASE
     Dosage: 34 MG, QD
     Route: 048
     Dates: start: 20161222
  22. MULTIVIT [Concomitant]
     Active Substance: VITAMINS
     Dosage: 1 MG
     Dates: start: 20170609
  23. STOOL SOFTENER (DOCUSATE) [Concomitant]
     Active Substance: DOCUSATE
     Indication: PRODUCT USED FOR UNKNOWN INDICATION
     Dosage: 8.6-50 MG
     Route: 048
     Dates: start: 20181221
  24. VOLTAREN [Concomitant]
     Active Substance: DICLOFENAC SODIUM
     Indication: PRODUCT USED FOR UNKNOWN INDICATION
     Dosage: 1%
     Dates: start: 20181221
  25. CELEBREX [Concomitant]
     Active Substance: CELECOXIB
     Indication: PRODUCT USED FOR UNKNOWN INDICATION
     Dosage: 200 MG
     Route: 048
     Dates: start: 20161221
  26. MULTIVIT [Concomitant]
     Active Substance: VITAMINS
     Indication: PRODUCT USED FOR UNKNOWN INDICATION
     Dosage: UNK
     Route: 048
     Dates: start: 20161221
  27. CRANBERRY. [Concomitant]
     Active Substance: CRANBERRY
     Indication: PRODUCT USED FOR UNKNOWN INDICATION
     Dosage: 4200-500
     Route: 048
     Dates: start: 20161221

REACTIONS (2)
  - Overdose [Unknown]
  - Urinary tract infection [Not Recovered/Not Resolved]

NARRATIVE: CASE EVENT DATE: 20181111
